FAERS Safety Report 9518564 (Version 6)
Quarter: 2014Q3

REPORT INFORMATION
  Report Type: Report from Study
  Country: CA (occurrence: CA)
  Receive Date: 20130912
  Receipt Date: 20140804
  Transmission Date: 20150326
  Serious: Yes (Hospitalization, Other)
  Sender: FDA-Public Use
  Company Number: PHHY2011CA114593

PATIENT
  Age: 49 Year
  Sex: Female

DRUGS (14)
  1. VITAMIN D [Concomitant]
     Active Substance: CHOLECALCIFEROL
     Dosage: UNK UKN, UNK
  2. CODEINE [Concomitant]
     Active Substance: CODEINE
     Dosage: UNK UKN, UNK
  3. SANDOSTATIN LAR DEPOT [Suspect]
     Active Substance: OCTREOTIDE ACETATE
     Indication: OFF LABEL USE
     Dosage: 30 MG, QMO
     Route: 030
  4. SANDOSTATIN LAR DEPOT [Suspect]
     Active Substance: OCTREOTIDE ACETATE
     Indication: ILEOSTOMY
     Dosage: UNK UKN, UNK
     Dates: start: 20131202
  5. REOMEN [Concomitant]
     Dosage: UNK UKN, UNK
  6. CALCIUM [Concomitant]
     Active Substance: CALCIUM
     Dosage: UNK UKN, UNK
  7. VITAMIN K NOS [Concomitant]
     Dosage: UNK UKN, UNK
  8. IMODIUM [Concomitant]
     Active Substance: LOPERAMIDE HYDROCHLORIDE
     Dosage: UNK UKN, UNK
  9. PANTOLOC CONTROL [Concomitant]
     Dosage: UNK UKN, UNK
  10. SANDOSTATIN LAR DEPOT [Suspect]
     Active Substance: OCTREOTIDE ACETATE
     Indication: CROHN^S DISEASE
     Dosage: 20 MG, QMO
     Route: 030
     Dates: start: 20111228
  11. SANDOSTATIN LAR DEPOT [Suspect]
     Active Substance: OCTREOTIDE ACETATE
     Dosage: 30 MG, ONCE A MONTH
     Route: 030
  12. CORTEF [Concomitant]
     Active Substance: HYDROCORTISONE
     Dosage: UNK UKN, UNK
  13. COUMADIN [Concomitant]
     Active Substance: WARFARIN SODIUM
     Dosage: UNK UKN, UNK
     Dates: end: 20120612
  14. CIMZIA [Concomitant]
     Active Substance: CERTOLIZUMAB PEGOL
     Dosage: UNK UKN, UNK

REACTIONS (8)
  - Pain [Recovering/Resolving]
  - Renal neoplasm [Unknown]
  - Abdominal pain upper [Recovering/Resolving]
  - Endometrial cancer stage IV [Unknown]
  - Injection site pain [Unknown]
  - Renal cell carcinoma [Recovered/Resolved]
  - Injection site induration [Unknown]
  - Epistaxis [Unknown]

NARRATIVE: CASE EVENT DATE: 20120703
